FAERS Safety Report 8932026 (Version 1)
Quarter: 2012Q4

REPORT INFORMATION
  Report Type: 
  Country: US (occurrence: US)
  Receive Date: 20121128
  Receipt Date: 20121128
  Transmission Date: 20130627
  Serious: Yes (Other)
  Sender: FDA-Public Use
  Company Number: US-PFIZER INC-2012010756

PATIENT
  Age: 69 Year
  Sex: Male
  Weight: 83.9 kg

DRUGS (11)
  1. TIKOSYN [Suspect]
     Indication: HEART RATE IRREGULAR
     Dosage: 0.25 mg, 2x/day
     Route: 048
     Dates: start: 201107
  2. CARVEDILOL [Concomitant]
     Indication: BLOOD PRESSURE HIGH
     Dosage: 3.125 mg once in morning and 12.5mg tablet once at night
  3. LISINOPRIL [Concomitant]
     Indication: BLOOD PRESSURE HIGH
     Dosage: 10 mg, 1x/day
  4. PREDNISOLONE [Concomitant]
     Dosage: 10 mg, 1x/day
  5. IMURAN [Concomitant]
     Dosage: 50 mg, 2x/day
  6. BACTRIM [Concomitant]
     Dosage: 400/80 mg, 1x/day
  7. CELEXA [Suspect]
     Indication: ANXIETY
     Dosage: 120 mg, 1x/day
  8. XANAX [Concomitant]
     Dosage: 0.25 mg, 2x/day
  9. TRAZODONE [Concomitant]
     Indication: SLEEP DISORDER
     Dosage: 100 mg, 1x/day
  10. POTASSIUM [Concomitant]
     Dosage: 120 mEq, UNK
  11. BABY ASPIRIN [Concomitant]
     Dosage: 81 mg, 1x/day

REACTIONS (5)
  - Macular degeneration [Not Recovered/Not Resolved]
  - Weight fluctuation [Unknown]
  - Haemoglobin increased [Unknown]
  - Vitamin D decreased [Unknown]
  - Vitamin B12 decreased [Unknown]
